FAERS Safety Report 7939612-7 (Version None)
Quarter: 2011Q4

REPORT INFORMATION
  Report Type: 
  Country: None (occurrence: None)
  Receive Date: 20111125
  Receipt Date: 20111118
  Transmission Date: 20120403
  Serious: Yes (Hospitalization)
  Sender: FDA-Public Use
  Company Number: US-AMGEN-USASP2011061127

PATIENT
  Age: 58 Year
  Sex: Male

DRUGS (1)
  1. ENBREL [Suspect]
     Indication: ANKYLOSING SPONDYLITIS
     Dosage: 50 MG, QWK
     Dates: start: 20110511

REACTIONS (4)
  - ANKYLOSING SPONDYLITIS [None]
  - ARTHROPATHY [None]
  - JOINT EFFUSION [None]
  - INTERVERTEBRAL DISC PROTRUSION [None]
